FAERS Safety Report 11380364 (Version 2)
Quarter: 2016Q1

REPORT INFORMATION
  Report Type: Spontaneous
  Country: US (occurrence: US)
  Receive Date: 20150814
  Receipt Date: 20160301
  Transmission Date: 20160525
  Serious: No
  Sender: FDA-Public Use
  Company Number: US-JNJFOC-20150600064

PATIENT
  Age: 48 Year
  Sex: Female
  Weight: 74.84 kg

DRUGS (8)
  1. QUESTRAN [Concomitant]
     Active Substance: CHOLESTYRAMINE
     Route: 048
  2. SYNTHROID [Concomitant]
     Active Substance: LEVOTHYROXINE SODIUM
     Indication: HYPOTHYROIDISM
     Route: 048
  3. SYNTHROID [Concomitant]
     Active Substance: LEVOTHYROXINE SODIUM
     Indication: HYPOTHYROIDISM
     Route: 048
  4. HYDROCODONE/ACETAMINOPHEN [Concomitant]
     Active Substance: ACETAMINOPHEN\HYDROCODONE
     Dosage: EVERY 4 TO 6 HOURS
     Route: 048
  5. ALBUTEROL. [Concomitant]
     Active Substance: ALBUTEROL
     Dosage: EVERY 4 TO 6 HOURS
     Route: 055
  6. REMICADE [Suspect]
     Active Substance: INFLIXIMAB
     Indication: CROHN^S DISEASE
     Dosage: LOADING DOSE
     Route: 042
     Dates: start: 20150506, end: 201505
  7. DEPAKOTE [Concomitant]
     Active Substance: DIVALPROEX SODIUM
     Indication: TYPICAL AURA WITHOUT HEADACHE
     Dosage: ONCE AT NIGHT
     Route: 048
     Dates: start: 2009
  8. LEVOTHYROXINE. [Concomitant]
     Active Substance: LEVOTHYROXINE
     Indication: THYROID DISORDER
     Dosage: ONCE IN THE MORNING.
     Route: 048
     Dates: start: 2005

REACTIONS (14)
  - Dizziness [Not Recovered/Not Resolved]
  - Depression [Unknown]
  - Blood thyroid stimulating hormone increased [Unknown]
  - Weight increased [Unknown]
  - Vision blurred [Not Recovered/Not Resolved]
  - Dry skin [Unknown]
  - Muscular weakness [Unknown]
  - Gastrointestinal pain [Unknown]
  - Malaise [Not Recovered/Not Resolved]
  - Constipation [Unknown]
  - Alopecia [Unknown]
  - Decreased appetite [Unknown]
  - Fatigue [Not Recovered/Not Resolved]
  - Asthenia [Unknown]

NARRATIVE: CASE EVENT DATE: 20150520
